FAERS Safety Report 8585087-7 (Version None)
Quarter: 2012Q3

REPORT INFORMATION
  Report Type: 
  Country: None (occurrence: None)
  Receive Date: 20120810
  Receipt Date: 20120803
  Transmission Date: 20120928
  Serious: Yes (Life-Threatening, Hospitalization, Other)
  Sender: FDA-Public Use
  Company Number: US-SANOFI-AVENTIS-2012SA056056

PATIENT
  Age: 69 Year
  Sex: Female

DRUGS (7)
  1. DIGOXIN [Concomitant]
  2. WARFARIN SODIUM [Concomitant]
  3. FLOLAN [Suspect]
     Indication: PULMONARY ARTERIAL HYPERTENSION
     Dosage: 36 NG/KG/MIN/CONTINUOUS
     Route: 042
     Dates: start: 20091201
  4. BOSENTAN [Suspect]
     Route: 065
  5. OMEPRAZOLE [Concomitant]
  6. FUROSEMIDE [Suspect]
     Route: 065
  7. ALL OTHER THERAPEUTIC PRODUCTS [Concomitant]

REACTIONS (3)
  - ABDOMINAL PAIN [None]
  - PNEUMONIA [None]
  - IRRITABLE BOWEL SYNDROME [None]
